FAERS Safety Report 24766362 (Version 1)
Quarter: 2024Q4

REPORT INFORMATION
  Report Type: Spontaneous
  Country: JP (occurrence: JP)
  Receive Date: 20241223
  Receipt Date: 20241223
  Transmission Date: 20250115
  Serious: Yes (Hospitalization, Other)
  Sender: RECORDATI
  Company Number: JP-RECORDATI-2023002979

PATIENT

DRUGS (5)
  1. SIGNIFOR LAR [Suspect]
     Active Substance: PASIREOTIDE PAMOATE
     Indication: Hyperadrenocorticism
     Dosage: 10 MG
     Route: 030
     Dates: start: 20230516, end: 2023
  2. SIGNIFOR LAR [Suspect]
     Active Substance: PASIREOTIDE PAMOATE
     Dosage: 20 MG
     Route: 030
     Dates: start: 20230603
  3. METYRAPONE [Suspect]
     Active Substance: METYRAPONE
     Indication: Pituitary-dependent Cushing^s syndrome
     Dosage: 750 MILLIGRAM PER DAY
     Route: 048
     Dates: start: 20230610, end: 20230715
  4. CORTRIL [Concomitant]
     Active Substance: HYDROCORTISONE
     Indication: Adrenal insufficiency
     Dosage: 20 MG/DAY
     Dates: start: 2021, end: 20230514
  5. MAGNESIUM OXIDE [Concomitant]
     Active Substance: MAGNESIUM OXIDE
     Indication: Product used for unknown indication
     Dosage: 990 MG
     Route: 048
     Dates: start: 20230513, end: 20230715

REACTIONS (4)
  - Premature rupture of membranes [Unknown]
  - COVID-19 [Unknown]
  - Hyperglycaemia [Unknown]
  - Maternal exposure during pregnancy [Recovered/Resolved]
